FAERS Safety Report 23397301 (Version 2)
Quarter: 2024Q1

REPORT INFORMATION
  Report Type: Spontaneous
  Country: MY (occurrence: MY)
  Receive Date: 20240112
  Receipt Date: 20240215
  Transmission Date: 20240410
  Serious: Yes (Other)
  Sender: FDA-Public Use
  Company Number: MY-002147023-NVSC2024MY005415

PATIENT

DRUGS (1)
  1. IMATINIB [Suspect]
     Active Substance: IMATINIB
     Indication: Chronic myeloid leukaemia
     Dosage: 200?400 MG, QD
     Route: 048
     Dates: start: 20041104, end: 20100616

REACTIONS (2)
  - Chronic myeloid leukaemia recurrent [Unknown]
  - Drug resistance [Unknown]
